FAERS Safety Report 7590174-6 (Version None)
Quarter: 2011Q3

REPORT INFORMATION
  Report Type: 
  Country: None (occurrence: None)
  Receive Date: 20110705
  Receipt Date: 20110621
  Transmission Date: 20111222
  Serious: Yes (Death)
  Sender: FDA-Public Use
  Company Number: US-WATSON-2011-09158

PATIENT
  Sex: Male

DRUGS (1)
  1. FENTANYL-100 [Suspect]
     Indication: PAIN
     Dosage: UNK
     Route: 062
     Dates: start: 20081101, end: 20081118

REACTIONS (4)
  - TOXICITY TO VARIOUS AGENTS [None]
  - DRUG PRESCRIBING ERROR [None]
  - DRUG LEVEL INCREASED [None]
  - PRODUCT QUALITY ISSUE [None]
